FAERS Safety Report 8432228-8 (Version None)
Quarter: 2012Q2

REPORT INFORMATION
  Report Type: 
  Country: None (occurrence: None)
  Receive Date: 20120613
  Receipt Date: 20120604
  Transmission Date: 20120825
  Serious: Yes (Hospitalization, Other)
  Sender: FDA-Public Use
  Company Number: US-BRISTOL-MYERS SQUIBB COMPANY-16660466

PATIENT
  Age: 73 Year
  Sex: Male
  Weight: 82 kg

DRUGS (1)
  1. DROXIA [Suspect]
     Indication: LEUKAEMIA
     Dosage: INTERRUPTED AND RESTARTED
     Dates: start: 20120101

REACTIONS (4)
  - CHEST PAIN [None]
  - ASTHENIA [None]
  - DIARRHOEA [None]
  - SYNCOPE [None]
